FAERS Safety Report 5129116-1 (Version None)
Quarter: 2006Q4

REPORT INFORMATION
  Report Type: 
  Country: None (occurrence: None)
  Receive Date: 20061011
  Receipt Date: 20060923
  Transmission Date: 20070319
  Serious: Yes (Hospitalization, Other)
  Sender: FDA-Public Use
  Company Number: DE200609006227

PATIENT
  Sex: Female

DRUGS (1)
  1. CYMBALTA [Suspect]
     Indication: DEPRESSION
     Dosage: 60 MG, DAILY (1/D); ORAL
     Route: 048
     Dates: start: 20060922, end: 20060923

REACTIONS (9)
  - DIARRHOEA [None]
  - ERUCTATION [None]
  - HYPERHIDROSIS [None]
  - HYPERTENSION [None]
  - HYPERTHERMIA [None]
  - RESTLESSNESS [None]
  - SEROTONIN SYNDROME [None]
  - TACHYCARDIA [None]
  - VOMITING [None]
